FAERS Safety Report 10593060 (Version 1)
Quarter: 2014Q4

REPORT INFORMATION
  Report Type: Spontaneous
  Country: US (occurrence: None)
  Receive Date: 20141118
  Receipt Date: 20141118
  Transmission Date: 20150529
  Serious: Yes (Hospitalization)
  Sender: FDA-Public Use
  Company Number: None

PATIENT
  Age: 3 Year
  Sex: Female
  Weight: 20.4 kg

DRUGS (2)
  1. CARBOPLATIN. [Suspect]
     Active Substance: CARBOPLATIN
     Dates: end: 20141025
  2. THIOTEPA. [Suspect]
     Active Substance: THIOTEPA
     Dates: end: 20141025

REACTIONS (4)
  - Proctalgia [None]
  - Hypotension [None]
  - Escherichia infection [None]
  - Dehydration [None]

NARRATIVE: CASE EVENT DATE: 20141103
